FAERS Safety Report 9630497 (Version 19)
Quarter: 2019Q1

REPORT INFORMATION
  Report Type: Report from Study
  Country: CA (occurrence: CA)
  Receive Date: 20131018
  Receipt Date: 20190114
  Transmission Date: 20190418
  Serious: Yes (Hospitalization, Other)
  Sender: FDA-Public Use
  Company Number: CA-ROCHE-1139277

PATIENT
  Age: 70 Year
  Sex: Female

DRUGS (21)
  1. LECTOPAM [Concomitant]
     Active Substance: BROMAZEPAM
     Route: 048
  2. PROVERA [Concomitant]
     Active Substance: MEDROXYPROGESTERONE ACETATE
  3. METHOTREXATE. [Concomitant]
     Active Substance: METHOTREXATE
  4. AVELOX [Concomitant]
     Active Substance: MOXIFLOXACIN HYDROCHLORIDE
  5. PROTYLOL [Suspect]
     Active Substance: DICYCLOMINE HYDROCHLORIDE
     Indication: PRODUCT USED FOR UNKNOWN INDICATION
     Route: 065
  6. DIPHENHYDRAMINE HCL [Concomitant]
     Active Substance: DIPHENHYDRAMINE HYDROCHLORIDE
     Indication: PREMEDICATION
     Route: 048
     Dates: start: 20120307, end: 20120926
  7. METHYLPREDNISOLONE. [Concomitant]
     Active Substance: METHYLPREDNISOLONE
     Indication: PREMEDICATION
     Route: 042
     Dates: start: 20120307, end: 20120926
  8. DILAUDID [Concomitant]
     Active Substance: HYDROMORPHONE HYDROCHLORIDE
  9. RITUXAN [Suspect]
     Active Substance: RITUXIMAB
     Indication: RHEUMATOID ARTHRITIS
     Dosage: LAST DOSE WAS ON 08/MAY/2014?FIRST RPAP INFUSION
     Route: 042
     Dates: start: 20110912
  10. ACETAMINOPHEN. [Concomitant]
     Active Substance: ACETAMINOPHEN
     Route: 048
     Dates: start: 20120321
  11. RITUXAN [Suspect]
     Active Substance: RITUXIMAB
     Dosage: LAST DOSE WAS ON 6/MAY/2014
     Route: 042
     Dates: start: 20150728
  12. ESTRACE (CANADA) [Concomitant]
  13. PANTOLOC [Concomitant]
     Active Substance: PANTOPRAZOLE SODIUM
  14. LEVAQUIN [Concomitant]
     Active Substance: LEVOFLOXACIN
  15. PLAQUENIL [Concomitant]
     Active Substance: HYDROXYCHLOROQUINE SULFATE
  16. PREDNISONE. [Concomitant]
     Active Substance: PREDNISONE
  17. PREMARIN [Concomitant]
     Active Substance: ESTROGENS, CONJUGATED
  18. ACETAMINOPHEN. [Concomitant]
     Active Substance: ACETAMINOPHEN
     Indication: PREMEDICATION
     Route: 048
     Dates: start: 20120307
  19. EMPRACET (CODEINE PHOSPHATE/PARACETAMOL) [Concomitant]
  20. BROMAZEPAM [Concomitant]
     Active Substance: BROMAZEPAM
     Route: 065
  21. CECLOR [Concomitant]
     Active Substance: CEFACLOR

REACTIONS (39)
  - Blood pressure increased [Unknown]
  - Bronchitis [Unknown]
  - Diarrhoea [Recovered/Resolved]
  - Weight decreased [Unknown]
  - White blood cell count increased [Unknown]
  - Back pain [Not Recovered/Not Resolved]
  - Blood pressure systolic increased [Unknown]
  - Vascular rupture [Unknown]
  - Joint injury [Unknown]
  - Increased bronchial secretion [Recovering/Resolving]
  - Musculoskeletal pain [Unknown]
  - Body temperature decreased [Unknown]
  - Arthralgia [Unknown]
  - Rhinorrhoea [Unknown]
  - Bronchospasm [Recovered/Resolved]
  - Asthma [Not Recovered/Not Resolved]
  - Pneumonia [Recovered/Resolved]
  - Pruritus [Recovered/Resolved]
  - Infusion related reaction [Unknown]
  - Sinus pain [Not Recovered/Not Resolved]
  - Heart rate increased [Unknown]
  - Respiratory rate increased [Unknown]
  - Occipital neuralgia [Not Recovered/Not Resolved]
  - Insomnia [Recovered/Resolved]
  - Rotator cuff syndrome [Unknown]
  - Rash [Recovered/Resolved]
  - Headache [Unknown]
  - Oxygen saturation decreased [Unknown]
  - Fall [Unknown]
  - Diarrhoea [Unknown]
  - Head injury [Unknown]
  - Erythema [Recovered/Resolved]
  - Nausea [Recovered/Resolved]
  - Abdominal pain upper [Unknown]
  - Cough [Unknown]
  - Rhinorrhoea [Unknown]
  - Abdominal pain [Not Recovered/Not Resolved]
  - Infusion related reaction [Unknown]
  - Sinusitis [Recovered/Resolved]

NARRATIVE: CASE EVENT DATE: 20120912
